FAERS Safety Report 14901729 (Version 3)
Quarter: 2018Q2

REPORT INFORMATION
  Report Type: Spontaneous
  Country: DE (occurrence: DE)
  Receive Date: 20180516
  Receipt Date: 20180619
  Transmission Date: 20180711
  Serious: Yes (Hospitalization)
  Sender: FDA-Public Use
  Company Number: DE-BAYER-2018-081763

PATIENT
  Age: 24 Year
  Sex: Female

DRUGS (1)
  1. JAYDESS [Suspect]
     Active Substance: LEVONORGESTREL
     Indication: CONTRACEPTION
     Dosage: 14 MCG/24HR, CONT
     Route: 015
     Dates: start: 20180312

REACTIONS (11)
  - Menstruation irregular [Not Recovered/Not Resolved]
  - Medical device discomfort [None]
  - Ruptured ectopic pregnancy [Recovered/Resolved]
  - Acute abdomen [Recovered/Resolved]
  - Ectopic pregnancy with contraceptive device [Recovered/Resolved]
  - Abortion of ectopic pregnancy [Recovered/Resolved]
  - Intra-abdominal haemorrhage [Recovered/Resolved]
  - Haemorrhage in pregnancy [Recovered/Resolved]
  - Drug ineffective [None]
  - Mental disorder [Not Recovered/Not Resolved]
  - Abdominal pain [Recovered/Resolved]

NARRATIVE: CASE EVENT DATE: 20180321
